FAERS Safety Report 9098408 (Version 3)
Quarter: 2013Q2

REPORT INFORMATION
  Report Type: Spontaneous
  Country: US (occurrence: US)
  Receive Date: 20130213
  Receipt Date: 20130404
  Transmission Date: 20140414
  Serious: Yes (Hospitalization)
  Sender: FDA-Public Use
  Company Number: PHEH2013US003277

PATIENT
  Sex: 0

DRUGS (1)
  1. FANAPT [Suspect]
     Dosage: UNK UKN, UNK
     Route: 048

REACTIONS (1)
  - Dysphagia [Unknown]
